FAERS Safety Report 10047613 (Version 1)
Quarter: 2014Q1

REPORT INFORMATION
  Report Type: Spontaneous
  Country: US (occurrence: None)
  Receive Date: 20140328
  Receipt Date: 20140328
  Transmission Date: 20141002
  Serious: Yes (Other)
  Sender: FDA-Public Use
  Company Number: None

PATIENT
  Age: 76 Year
  Sex: Male
  Weight: 70.6 kg

DRUGS (3)
  1. TYLENOL [Suspect]
     Indication: PAIN
     Route: 048
     Dates: start: 20140323, end: 20140324
  2. TYLENOL [Suspect]
     Indication: PYREXIA
     Route: 048
     Dates: start: 20140323, end: 20140324
  3. PERCOCET [Suspect]
     Route: 048
     Dates: start: 20140311, end: 20140327

REACTIONS (3)
  - Hepatic enzyme increased [None]
  - Blood alkaline phosphatase increased [None]
  - Aspartate aminotransferase increased [None]
